FAERS Safety Report 5931388-8 (Version None)
Quarter: 2008Q4

REPORT INFORMATION
  Report Type: 
  Country: None (occurrence: None)
  Receive Date: 20081023
  Receipt Date: 20081023
  Transmission Date: 20090506
  Serious: Yes (Life-Threatening, Hospitalization)
  Sender: FDA-Public Use
  Company Number: None

PATIENT
  Sex: Male
  Weight: 104.3273 kg

DRUGS (1)
  1. ANADROL [Suspect]
     Indication: MUSCLE BUILDING THERAPY
     Dosage: DAILY

REACTIONS (8)
  - ABDOMINAL PAIN UPPER [None]
  - ANOREXIA [None]
  - FATIGUE [None]
  - GENERAL PHYSICAL HEALTH DETERIORATION [None]
  - JAUNDICE [None]
  - MALAISE [None]
  - VOMITING [None]
  - WEIGHT DECREASED [None]
